FAERS Safety Report 7918105-7 (Version None)
Quarter: 2011Q4

REPORT INFORMATION
  Report Type: 
  Country: None (occurrence: None)
  Receive Date: 20111116
  Receipt Date: 20110101
  Transmission Date: 20120403
  Serious: Yes (Other)
  Sender: FDA-Public Use
  Company Number: NO-GLAXOSMITHKLINE-A0952873A

PATIENT
  Age: 23 Year
  Sex: Female

DRUGS (1)
  1. ALLI [Suspect]

REACTIONS (1)
  - HAEMATOCHEZIA [None]
